FAERS Safety Report 22302764 (Version 2)
Quarter: 2023Q4

REPORT INFORMATION
  Report Type: Other
  Country: DE (occurrence: DE)
  Receive Date: 20230510
  Receipt Date: 20231017
  Transmission Date: 20240109
  Serious: Yes (Other)
  Sender: FDA-Public Use
  Company Number: DE-ROCHE-3336220

PATIENT

DRUGS (13)
  1. TAFASITAMAB [Suspect]
     Active Substance: TAFASITAMAB
     Indication: Diffuse large B-cell lymphoma
     Route: 065
     Dates: start: 20230210, end: 20230411
  2. VINCRISTINE [Suspect]
     Active Substance: VINCRISTINE
     Indication: Diffuse large B-cell lymphoma
     Dosage: 1ST LINE, R-CHOP, INTRAVENOUS
     Route: 065
     Dates: start: 20200101, end: 20200605
  3. CYCLOPHOSPHAMIDE [Suspect]
     Active Substance: CYCLOPHOSPHAMIDE
     Indication: Diffuse large B-cell lymphoma
     Dosage: 1ST LINE, R-CHOP, INTRAVENOUS
     Route: 065
     Dates: start: 20200101, end: 20200605
  4. RITUXIMAB [Suspect]
     Active Substance: RITUXIMAB
     Indication: Diffuse large B-cell lymphoma
     Dosage: 1ST LINE, R-CHOP
     Route: 065
     Dates: start: 20200101, end: 20200605
  5. RITUXIMAB [Suspect]
     Active Substance: RITUXIMAB
     Dosage: 2ND LINE, R-GDP
     Route: 065
     Dates: start: 20210301, end: 20210510
  6. RITUXIMAB [Suspect]
     Active Substance: RITUXIMAB
     Dosage: 4TH LINE, R-GEMOX
     Route: 065
     Dates: start: 20221125, end: 20230126
  7. LENALIDOMIDE [Suspect]
     Active Substance: LENALIDOMIDE
     Indication: Diffuse large B-cell lymphoma
     Route: 065
     Dates: start: 20230210, end: 20230411
  8. DOXORUBICIN [Suspect]
     Active Substance: DOXORUBICIN
     Indication: Diffuse large B-cell lymphoma
     Dosage: 1ST LINE, R-CHOP, INTRAVENOUS
     Route: 065
     Dates: start: 20200101, end: 20200605
  9. CISPLATIN [Suspect]
     Active Substance: CISPLATIN
     Indication: Diffuse large B-cell lymphoma
     Dosage: 2ND LINE, R-GDP, 3 CYCLES
     Route: 065
     Dates: start: 20210301, end: 20210510
  10. DEXAMETHASONE [Suspect]
     Active Substance: DEXAMETHASONE
     Indication: Diffuse large B-cell lymphoma
     Dosage: 2ND LINE, R-GDP, 3 CYCLES
     Route: 065
     Dates: start: 20210301, end: 20210310
  11. PREDNISONE [Suspect]
     Active Substance: PREDNISONE
     Indication: Diffuse large B-cell lymphoma
     Dosage: 1ST LINE, R-CHOP
     Route: 065
     Dates: start: 20200101, end: 20200605
  12. OXALIPLATIN [Suspect]
     Active Substance: OXALIPLATIN
     Indication: Diffuse large B-cell lymphoma
     Dosage: 4TH LINE, R-GEMOX
     Route: 065
     Dates: start: 20221125, end: 20230126
  13. GEMCITABINE [Suspect]
     Active Substance: GEMCITABINE
     Indication: Diffuse large B-cell lymphoma
     Dosage: 2ND LINE, R-GDP, 3 CYCLES
     Route: 065
     Dates: start: 20210301, end: 20210510

REACTIONS (1)
  - Lymphoma [Not Recovered/Not Resolved]
